FAERS Safety Report 10167561 (Version 2)
Quarter: 2014Q2

REPORT INFORMATION
  Report Type: Spontaneous
  Country: JP (occurrence: JP)
  Receive Date: 20140512
  Receipt Date: 20140515
  Transmission Date: 20141212
  Serious: Yes (Other)
  Sender: FDA-Public Use
  Company Number: PHHY2014JP056383

PATIENT
  Age: 52 Year
  Sex: Female

DRUGS (2)
  1. ZOMETA [Suspect]
     Indication: METASTASES TO BONE
     Dosage: 4 MG, PER ADMINISTRATION
     Route: 041
     Dates: start: 20101011, end: 201305
  2. ZOMETA [Suspect]
     Dosage: 4 MG, PER ADMINISTRATION
     Route: 041
     Dates: start: 201309

REACTIONS (2)
  - Osteomyelitis [Recovering/Resolving]
  - Loose tooth [Unknown]
